FAERS Safety Report 22279329 (Version 1)
Quarter: 2023Q2

REPORT INFORMATION
  Report Type: Spontaneous
  Country: US (occurrence: None)
  Receive Date: 20230502
  Receipt Date: 20230502
  Transmission Date: 20230721
  Serious: Yes (Hospitalization)
  Sender: FDA-Public Use
  Company Number: None

PATIENT
  Age: 83 Year
  Sex: Female
  Weight: 45.27 kg

DRUGS (14)
  1. PROLIA [Suspect]
     Active Substance: DENOSUMAB
     Indication: Osteoporosis
     Dosage: 60 MG  Q 6 MONTHS SQ?
     Route: 058
     Dates: start: 20210521
  2. SERTRALINE [Concomitant]
     Active Substance: SERTRALINE HYDROCHLORIDE
  3. CHONDROITIN SULFATE (BOVINE)\GLUCOSAMINE HYDROCHLORIDE [Concomitant]
     Active Substance: CHONDROITIN SULFATE (BOVINE)\GLUCOSAMINE HYDROCHLORIDE
  4. VITAMINS [Concomitant]
     Active Substance: VITAMINS
  5. FUROSEMIDE [Concomitant]
     Active Substance: FUROSEMIDE
  6. LEVOTHYROXINE [Concomitant]
     Active Substance: LEVOTHYROXINE
  7. GARLIC [Concomitant]
     Active Substance: GARLIC
  8. POTASSIUM [Concomitant]
     Active Substance: POTASSIUM
  9. PROBIOTICS NOS [Concomitant]
     Active Substance: PROBIOTICS NOS
  10. VITAMIN C [Concomitant]
     Active Substance: ASCORBIC ACID
  11. ALLOPURINOL [Concomitant]
     Active Substance: ALLOPURINOL
  12. ATORVASTATIN [Concomitant]
     Active Substance: ATORVASTATIN
  13. DONEPEZIL [Concomitant]
     Active Substance: DONEPEZIL
  14. SPIRIVA RESPIMAT [Concomitant]
     Active Substance: TIOTROPIUM BROMIDE

REACTIONS (1)
  - Myocardial infarction [None]

NARRATIVE: CASE EVENT DATE: 20230201
